FAERS Safety Report 6204277-1 (Version None)
Quarter: 2009Q2

REPORT INFORMATION
  Report Type: 
  Country: None (occurrence: None)
  Receive Date: 20090527
  Receipt Date: 20090519
  Transmission Date: 20091009
  Serious: Yes (Disabling, Other)
  Sender: FDA-Public Use
  Company Number: BR-ASTRAZENECA-2009UW12177

PATIENT
  Age: 31 Year
  Sex: Male
  Weight: 115 kg

DRUGS (5)
  1. ROSUVASTATIN CALCIUM [Suspect]
     Indication: HYPERCHOLESTEROLAEMIA
     Route: 048
     Dates: start: 20090424, end: 20090506
  2. LIPANON [Concomitant]
     Indication: HYPERTRIGLYCERIDAEMIA
     Route: 048
     Dates: start: 20090424, end: 20090506
  3. ESPIRONOLACTONA [Concomitant]
     Indication: DIURETIC THERAPY
     Route: 048
     Dates: start: 20090424, end: 20090506
  4. ATENOPRESS [Concomitant]
     Indication: HYPERTENSION
     Route: 048
     Dates: start: 20090424, end: 20090514
  5. ATENSINA [Concomitant]
     Indication: HYPERTENSION
     Route: 048
     Dates: start: 20090424

REACTIONS (5)
  - ASTHENIA [None]
  - DYSPNOEA [None]
  - HYPERTENSION [None]
  - MYALGIA [None]
  - SKIN DISORDER [None]
